FAERS Safety Report 25441254 (Version 7)
Quarter: 2025Q3

REPORT INFORMATION
  Report Type: Report from Study
  Country: EU (occurrence: EU)
  Receive Date: 20250616
  Receipt Date: 20250715
  Transmission Date: 20251021
  Serious: Yes (Other)
  Sender: NOVARTIS
  Company Number: EU-002147023-NVSC2025FR094997

PATIENT
  Age: 39 Year
  Sex: Female

DRUGS (3)
  1. KESIMPTA [Suspect]
     Active Substance: OFATUMUMAB
     Indication: Relapsing-remitting multiple sclerosis
     Route: 058
     Dates: start: 20250606
  2. KESIMPTA [Suspect]
     Active Substance: OFATUMUMAB
     Route: 058
  3. KESIMPTA [Suspect]
     Active Substance: OFATUMUMAB
     Route: 058

REACTIONS (45)
  - Angina pectoris [Recovered/Resolved]
  - Chest discomfort [Recovered/Resolved]
  - Facial discomfort [Recovered/Resolved]
  - Paraesthesia [Recovered/Resolved]
  - Hypoaesthesia [Recovered/Resolved]
  - Pyrexia [Recovered/Resolved]
  - Nausea [Recovered/Resolved]
  - Vomiting [Recovered/Resolved]
  - Arthralgia [Recovered/Resolved]
  - Tremor [Recovered/Resolved]
  - Chest discomfort [Recovered/Resolved]
  - Ear infection [Recovered/Resolved]
  - Fatigue [Recovered/Resolved]
  - Feeling cold [Recovered/Resolved]
  - Decreased appetite [Recovered/Resolved]
  - Hypoaesthesia [Recovered/Resolved]
  - Paraesthesia [Recovered/Resolved]
  - Facial discomfort [Recovered/Resolved]
  - Chest discomfort [Recovered/Resolved]
  - Arthralgia [Recovered/Resolved]
  - Nausea [Not Recovered/Not Resolved]
  - Feeling of body temperature change [Recovered/Resolved]
  - Hypokinesia [Unknown]
  - Paraesthesia [Recovered/Resolved]
  - Headache [Not Recovered/Not Resolved]
  - Cough [Recovered/Resolved]
  - Sensory loss [Recovered/Resolved]
  - Respiratory disorder [Recovered/Resolved]
  - Nasopharyngitis [Recovered/Resolved]
  - Ear discomfort [Recovered/Resolved]
  - Peripheral swelling [Recovered/Resolved]
  - Musculoskeletal stiffness [Recovered/Resolved]
  - Sensory loss [Unknown]
  - Illness [Unknown]
  - Speech disorder [Recovered/Resolved]
  - Paraesthesia [Recovered/Resolved]
  - Decreased appetite [Recovering/Resolving]
  - Vomiting [Recovered/Resolved]
  - Pain in extremity [Recovered/Resolved]
  - Gait disturbance [Recovered/Resolved]
  - Swelling [Recovering/Resolving]
  - Neck pain [Recovered/Resolved]
  - Dysphonia [Recovered/Resolved]
  - Thyroid disorder [Unknown]
  - Vomiting [Recovered/Resolved]

NARRATIVE: CASE EVENT DATE: 20250606
